FAERS Safety Report 24855511 (Version 1)
Quarter: 2025Q1

REPORT INFORMATION
  Report Type: Spontaneous
  Country: US (occurrence: US)
  Receive Date: 20250117
  Receipt Date: 20250117
  Transmission Date: 20250408
  Serious: Yes (Death, Other)
  Sender: JUBILANT
  Company Number: US-JUBILANT CADISTA PHARMACEUTICALS-2025US000021

PATIENT
  Age: 51 Year
  Sex: Male

DRUGS (12)
  1. VALACYCLOVIR [Suspect]
     Active Substance: VALACYCLOVIR HYDROCHLORIDE
     Indication: Prophylaxis
     Dosage: 500 MG, 2 TIMES PER DAY
     Route: 048
  2. VALACYCLOVIR [Suspect]
     Active Substance: VALACYCLOVIR HYDROCHLORIDE
     Dosage: 1 G, 2 TIMES PER DAY (DOSE INCREASED FOR 1 WEEK)
     Route: 048
  3. ACYCLOVIR [Suspect]
     Active Substance: ACYCLOVIR
     Indication: Herpes simplex
     Dosage: 10 MG/KG, EVERY 3 HOURS
  4. FLUDARABINE [Concomitant]
     Active Substance: FLUDARABINE PHOSPHATE
     Indication: Product used for unknown indication
     Route: 065
  5. BUSULFAN [Concomitant]
     Active Substance: BUSULFAN
     Indication: Product used for unknown indication
     Route: 065
  6. CLOFARABINE [Concomitant]
     Active Substance: CLOFARABINE
     Indication: Product used for unknown indication
     Route: 065
  7. POSACONAZOLE [Concomitant]
     Active Substance: POSACONAZOLE
     Indication: Prophylaxis
     Route: 065
  8. CEFPODOXIME [Concomitant]
     Active Substance: CEFPODOXIME
     Indication: Prophylaxis
     Route: 065
  9. SULFAMETHOXAZOLE\TRIMETHOPRIM [Concomitant]
     Active Substance: SULFAMETHOXAZOLE\TRIMETHOPRIM
     Indication: Prophylaxis
     Route: 065
  10. VANCOMYCIN [Concomitant]
     Active Substance: VANCOMYCIN
     Indication: Liver abscess
     Route: 042
  11. MEROPENEM [Concomitant]
     Active Substance: MEROPENEM
     Indication: Liver abscess
     Route: 042
  12. AMPHOTERICIN B [Concomitant]
     Active Substance: AMPHOTERICIN B
     Indication: Product used for unknown indication
     Route: 042

REACTIONS (8)
  - Drug resistance [Fatal]
  - Herpes simplex [Fatal]
  - Acute hepatic failure [Fatal]
  - Coagulopathy [Fatal]
  - Multiple organ dysfunction syndrome [Fatal]
  - Hypotension [Fatal]
  - Renal impairment [Fatal]
  - Encephalopathy [Fatal]
